FAERS Safety Report 12126025 (Version 1)
Quarter: 2016Q1

REPORT INFORMATION
  Report Type: Report from Study
  Country: IT (occurrence: IT)
  Receive Date: 20160229
  Receipt Date: 20160229
  Transmission Date: 20160526
  Serious: Yes (Other)
  Sender: FDA-Public Use
  Company Number: PHHY2016IT021799

PATIENT
  Age: 68 Year
  Sex: Male

DRUGS (4)
  1. OFATUMUMAB [Suspect]
     Active Substance: OFATUMUMAB
     Indication: CHRONIC LYMPHOCYTIC LEUKAEMIA
     Dosage: 300 MG, (Q3W) CYCLIC (CYCLE 1 /DAY 1, THEN 1000 MG AT CYCLE 1/DAY 8 AND FURTHER CYCLES AT DAY 1)
     Route: 042
     Dates: start: 20111125, end: 20120309
  2. CYCLOPHOSPHAMIDE. [Suspect]
     Active Substance: CYCLOPHOSPHAMIDE
     Indication: CHRONIC LYMPHOCYTIC LEUKAEMIA
     Dosage: 600 MG/M2, Q3W CYCLIC (MG/MQ)
     Route: 042
     Dates: start: 20111125, end: 20120309
  3. NIPENT [Suspect]
     Active Substance: PENTOSTATIN
     Indication: CHRONIC LYMPHOCYTIC LEUKAEMIA
     Dosage: 4 MG/M2, CYCLIC (MG/MQ) FOR ALL 6 CYCLES
     Route: 042
     Dates: start: 20111125, end: 20120309
  4. AVODART [Concomitant]
     Active Substance: DUTASTERIDE
     Indication: PRODUCT USED FOR UNKNOWN INDICATION
     Dosage: UNK
     Route: 065

REACTIONS (1)
  - Myelodysplastic syndrome [Recovered/Resolved]

NARRATIVE: CASE EVENT DATE: 20130617
